FAERS Safety Report 10428876 (Version 3)
Quarter: 2014Q4

REPORT INFORMATION
  Report Type: Spontaneous
  Country: IT (occurrence: IT)
  Receive Date: 20140904
  Receipt Date: 20141223
  Transmission Date: 20150528
  Serious: Yes (Hospitalization, Other)
  Sender: FDA-Public Use
  Company Number: IT-AMGEN-ITASP2014066751

PATIENT
  Age: 61 Year
  Sex: Male

DRUGS (5)
  1. IRINOTECAN HYDROCHLORIDE TRIHYDRATE [Concomitant]
     Active Substance: IRINOTECAN HYDROCHLORIDE
     Indication: COLON CANCER METASTATIC
     Dosage: 320 MG, UNK
     Route: 042
     Dates: start: 20140812
  2. FLUOROURACIL. [Concomitant]
     Active Substance: FLUOROURACIL
     Indication: COLON CANCER METASTATIC
     Dosage: 1080 MG, UNK
     Route: 040
     Dates: start: 20140812
  3. VECTIBIX [Suspect]
     Active Substance: PANITUMUMAB
     Indication: COLON CANCER METASTATIC
     Dosage: 400 MG, TOTAL (20 MG/ML)
     Route: 042
     Dates: start: 20140812, end: 20140812
  4. VECTIBIX [Suspect]
     Active Substance: PANITUMUMAB
     Dosage: 38 MG, TOTAL (20 MG/ML)
     Route: 042
     Dates: start: 20140812, end: 20140812
  5. CALCIUM LEVOFOLINATE [Concomitant]
     Active Substance: LEVOLEUCOVORIN CALCIUM
     Indication: COLON CANCER METASTATIC
     Dosage: 180 MG, UNK
     Route: 042
     Dates: start: 20140812

REACTIONS (1)
  - Folliculitis [Recovering/Resolving]

NARRATIVE: CASE EVENT DATE: 20140822
